FAERS Safety Report 26082356 (Version 3)
Quarter: 2025Q4

REPORT INFORMATION
  Report Type: Spontaneous
  Country: US (occurrence: US)
  Receive Date: 20251124
  Receipt Date: 20251226
  Transmission Date: 20260118
  Serious: No
  Sender: JOHNSON AND JOHNSON
  Company Number: US-JNJFOC-20251161683

PATIENT
  Age: 67 Year

DRUGS (2)
  1. STELARA [Suspect]
     Active Substance: USTEKINUMAB
     Indication: Product used for unknown indication
     Route: 058
     Dates: start: 20251114, end: 20251114
  2. STELARA [Suspect]
     Active Substance: USTEKINUMAB

REACTIONS (3)
  - Device deployment issue [Unknown]
  - Needle issue [Unknown]
  - Product dose omission issue [Unknown]

NARRATIVE: CASE EVENT DATE: 20251114
